FAERS Safety Report 20530501 (Version 2)
Quarter: 2022Q1

REPORT INFORMATION
  Report Type: Report from Study
  Country: CN (occurrence: CN)
  Receive Date: 20220301
  Receipt Date: 20220308
  Transmission Date: 20220424
  Serious: Yes (Other)
  Sender: FDA-Public Use
  Company Number: CN-NOVARTISPH-NVSC2021CN106051

PATIENT
  Age: 55 Year
  Sex: Male

DRUGS (23)
  1. ENTRESTO [Suspect]
     Active Substance: SACUBITRIL\VALSARTAN
     Indication: Cardiac failure chronic
     Dosage: 50 MG
     Route: 048
     Dates: start: 20201027, end: 20211117
  2. TERBUTALINE SULFATE [Concomitant]
     Active Substance: TERBUTALINE SULFATE
     Indication: Pre-existing disease
     Dosage: 5 MG (SOLUTION FOR NEBULIZATION)
     Route: 055
     Dates: start: 20201023, end: 20201030
  3. TERBUTALINE SULFATE [Concomitant]
     Active Substance: TERBUTALINE SULFATE
     Dosage: 5 MG (SOLUTION FOR NEBULIZATION)
     Route: 055
     Dates: start: 20201106, end: 20201115
  4. BUDESONIDE [Concomitant]
     Active Substance: BUDESONIDE
     Indication: Pre-existing disease
     Dosage: 1 MG (SUSPENTION)
     Route: 055
     Dates: start: 20201023, end: 20201030
  5. AMLODIPINE BESYLATE [Concomitant]
     Active Substance: AMLODIPINE BESYLATE
     Indication: Pre-existing disease
     Dosage: 5 MG, UNKNOWN
     Route: 048
     Dates: start: 20201023
  6. BISOPROLOL FUMARATE [Concomitant]
     Active Substance: BISOPROLOL FUMARATE
     Indication: Pre-existing disease
     Dosage: 5 MG
     Route: 048
     Dates: start: 20201022, end: 20201105
  7. BISOPROLOL FUMARATE [Concomitant]
     Active Substance: BISOPROLOL FUMARATE
     Dosage: 3.75 MG
     Route: 048
     Dates: start: 20201106, end: 20201106
  8. BISOPROLOL FUMARATE [Concomitant]
     Active Substance: BISOPROLOL FUMARATE
     Dosage: 1.25 MG
     Route: 048
     Dates: start: 20211110
  9. ASPIRIN [Concomitant]
     Active Substance: ASPIRIN
     Indication: Pre-existing disease
     Dosage: 0.1 G (ENTERIC-COATED TABLETS)
     Route: 048
     Dates: start: 20201022
  10. ATORVASTATIN CALCIUM [Concomitant]
     Active Substance: ATORVASTATIN CALCIUM
     Indication: Cardiac failure
     Dosage: 20 MG
     Route: 048
     Dates: start: 20201022
  11. LANSOPRAZOLE [Concomitant]
     Active Substance: LANSOPRAZOLE
     Indication: Stress ulcer
     Dosage: 30 MG, UNKNOWN
     Route: 048
     Dates: start: 20201022, end: 20201030
  12. TORSEMIDE [Concomitant]
     Active Substance: TORSEMIDE
     Indication: Cardiac failure
     Dosage: 10 MG, UNKNOWN
     Route: 048
     Dates: start: 20201022, end: 20201030
  13. SPIRONOLACTONE [Concomitant]
     Active Substance: SPIRONOLACTONE
     Indication: Cardiac failure
     Dosage: 20 MG
     Route: 048
     Dates: start: 20201022, end: 2021
  14. CLOPIDOGREL BISULFATE [Concomitant]
     Active Substance: CLOPIDOGREL BISULFATE
     Indication: Cardiac failure
     Dosage: 75 MG
     Route: 048
     Dates: start: 20201022, end: 202011
  15. ACETYLCYSTEINE [Concomitant]
     Active Substance: ACETYLCYSTEINE
     Indication: Pre-existing disease
     Dosage: 0.3 G (SOLUTION FOR INHALATION)
     Route: 055
     Dates: start: 20201106, end: 20201106
  16. TERBUTALINE SULFATE [Concomitant]
     Active Substance: TERBUTALINE SULFATE
     Indication: Pre-existing disease
     Dosage: 5 MG
     Route: 055
     Dates: start: 20201106, end: 20201115
  17. DOXOFYLLINE [Concomitant]
     Active Substance: DOXOFYLLINE
     Indication: Pre-existing disease
     Dosage: 0.3 G
     Route: 042
     Dates: start: 20211107, end: 20211107
  18. METOCLOPRAMIDE DIHYDROCHLORIDE [Concomitant]
     Indication: Vomiting
     Dosage: 10 MG
     Route: 042
     Dates: start: 20211107, end: 20211107
  19. INSULIN NOS [Concomitant]
     Active Substance: INSULIN NOS
     Indication: Pre-existing disease
     Dosage: 10 IU
     Route: 058
     Dates: start: 20211107, end: 20211107
  20. NADROPARIN CALCIUM [Concomitant]
     Active Substance: NADROPARIN CALCIUM
     Indication: Antithrombin III deficiency
     Dosage: 4500 IU
     Route: 058
  21. MORPHINE HYDROCHLORIDE [Concomitant]
     Active Substance: MORPHINE HYDROCHLORIDE
     Indication: Cardiac failure
     Dosage: 3 MG
     Route: 050
     Dates: start: 20211107, end: 20211107
  22. REBAMIPIDE [Concomitant]
     Active Substance: REBAMIPIDE
     Indication: Stress ulcer
     Dosage: 0.1 G
     Route: 048
     Dates: start: 20201126, end: 2021
  23. ESOMEPRAZOLE MAGNESIUM [Concomitant]
     Active Substance: ESOMEPRAZOLE MAGNESIUM
     Indication: Stress ulcer
     Dosage: 40 MG
     Route: 048
     Dates: start: 20211110, end: 20211113

REACTIONS (4)
  - Hyperkalaemia [Recovered/Resolved]
  - Pneumonia [Recovered/Resolved]
  - Constipation [Recovered/Resolved]
  - Wrong technique in product usage process [Unknown]

NARRATIVE: CASE EVENT DATE: 20201027
